FAERS Safety Report 11361943 (Version 7)
Quarter: 2016Q2

REPORT INFORMATION
  Report Type: Report from Study
  Country: CA (occurrence: CA)
  Receive Date: 20150810
  Receipt Date: 20160629
  Transmission Date: 20160815
  Serious: Yes (Death, Hospitalization)
  Sender: FDA-Public Use
  Company Number: PHHY2015CA092833

PATIENT
  Age: 73 Year
  Sex: Male

DRUGS (5)
  1. SANDOSTATIN LAR DEPOT [Suspect]
     Active Substance: OCTREOTIDE ACETATE
     Dosage: 60 MG, EVERY 3 WEEKS
     Route: 030
     Dates: start: 20151130
  2. SANDOSTATIN LAR DEPOT [Suspect]
     Active Substance: OCTREOTIDE ACETATE
     Dosage: 60 MG, EVERY 3 WEEKS
     Route: 030
     Dates: start: 20160516
  3. SANDOSTATIN LAR DEPOT [Suspect]
     Active Substance: OCTREOTIDE ACETATE
     Indication: ACROMEGALY
     Dosage: 60 MG, EVERY 3 WEEKS
     Route: 030
     Dates: start: 20050601
  4. SANDOSTATIN LAR DEPOT [Suspect]
     Active Substance: OCTREOTIDE ACETATE
     Dosage: 60 MG, EVERY 3 WEEKS
     Route: 030
     Dates: start: 20160223
  5. SANDOSTATIN LAR DEPOT [Suspect]
     Active Substance: OCTREOTIDE ACETATE
     Dosage: 60 MG, EVERY 3 WEEKS
     Route: 030
     Dates: start: 20160425

REACTIONS (16)
  - Fall [Unknown]
  - Inappropriate schedule of drug administration [Unknown]
  - Loss of consciousness [Unknown]
  - Urinary incontinence [Unknown]
  - Oxygen saturation decreased [Unknown]
  - Areflexia [Unknown]
  - Needle issue [Unknown]
  - Mobility decreased [Unknown]
  - Confusional state [Unknown]
  - Anal incontinence [Unknown]
  - Mass [Unknown]
  - Injection site induration [Unknown]
  - Death [Fatal]
  - Cerebrovascular accident [Unknown]
  - Product quality issue [Unknown]
  - Unresponsive to stimuli [Unknown]

NARRATIVE: CASE EVENT DATE: 20050601
